FAERS Safety Report 23762242 (Version 3)
Quarter: 2024Q2

REPORT INFORMATION
  Report Type: Spontaneous
  Country: BE (occurrence: BE)
  Receive Date: 20240419
  Receipt Date: 20240605
  Transmission Date: 20240716
  Serious: Yes (Other)
  Sender: FDA-Public Use
  Company Number: BE-CELLTRION HEALTHCARE HUNGARY KFT-2024BE007731

PATIENT
  Age: 65 Year
  Sex: Female

DRUGS (16)
  1. TACROLIMUS [Suspect]
     Active Substance: TACROLIMUS
     Indication: Pyoderma gangrenosum
     Dosage: UNK
     Route: 065
  2. MINOCYCLINE [Suspect]
     Active Substance: MINOCYCLINE HYDROCHLORIDE
     Indication: Pyoderma gangrenosum
     Dosage: 200 MILLIGRAM, QD
     Route: 065
  3. DOXYCYCLINE [Suspect]
     Active Substance: DOXYCYCLINE\DOXYCYCLINE HYCLATE
     Indication: Pyoderma gangrenosum
     Dosage: 200 MILLIGRAM, QD
     Route: 065
  4. AZITHROMYCIN [Suspect]
     Active Substance: AZITHROMYCIN
     Indication: Pyoderma gangrenosum
     Dosage: 500 MILLIGRAM, 3XW
     Route: 065
  5. METHOTREXATE [Suspect]
     Active Substance: METHOTREXATE
     Indication: Spondylitis
     Dosage: 15 MILLIGRAM, QW,(15 MG/WK)
     Route: 065
  6. INFLIXIMAB [Suspect]
     Active Substance: INFLIXIMAB
     Indication: Spondylitis
     Dosage: 5 MILLIGRAM/KILOGRAM,(5 MG/KG/8 WK)
     Route: 065
  7. METHYLPREDNISOLONE [Suspect]
     Active Substance: METHYLPREDNISOLONE
     Indication: Pyoderma gangrenosum
     Dosage: 32 MILLIGRAM, QD
     Route: 065
  8. METHYLPREDNISOLONE [Suspect]
     Active Substance: METHYLPREDNISOLONE
     Dosage: UNK
     Route: 065
  9. COLCHICINE [Suspect]
     Active Substance: COLCHICINE
     Indication: Pyoderma gangrenosum
     Dosage: 2 MILLIGRAM, QD
     Route: 065
  10. PREDNISONE [Suspect]
     Active Substance: PREDNISONE
     Indication: Pyoderma gangrenosum
     Dosage: UNK, QD (MORE THAN 10MG)
     Route: 065
  11. CYCLOSPORINE [Suspect]
     Active Substance: CYCLOSPORINE
     Indication: Pyoderma gangrenosum
     Dosage: UNK
     Route: 065
  12. RINVOQ [Concomitant]
     Active Substance: UPADACITINIB
     Indication: Pyoderma gangrenosum
     Dosage: 15 MILLIGRAM, QD
     Route: 065
  13. RINVOQ [Concomitant]
     Active Substance: UPADACITINIB
     Indication: Spondylitis
  14. SECUKINUMAB [Concomitant]
     Active Substance: SECUKINUMAB
     Indication: Spondylitis
     Dosage: 150 MILLIGRAM, 4XW
     Route: 065
  15. ETANERCEPT [Concomitant]
     Active Substance: ETANERCEPT
     Indication: Spondylitis
     Dosage: 50 MILLIGRAM, QW
     Route: 065
  16. APREMILAST [Concomitant]
     Active Substance: APREMILAST
     Indication: Spondylitis
     Dosage: 30 MILLIGRAM, BID
     Route: 065

REACTIONS (3)
  - Organising pneumonia [Not Recovered/Not Resolved]
  - Pyoderma gangrenosum [Not Recovered/Not Resolved]
  - Drug ineffective [Unknown]
